FAERS Safety Report 8427973-4 (Version None)
Quarter: 2012Q2

REPORT INFORMATION
  Report Type: 
  Country: None (occurrence: None)
  Receive Date: 20120611
  Receipt Date: 20120601
  Transmission Date: 20120825
  Serious: Yes (Hospitalization, Other)
  Sender: FDA-Public Use
  Company Number: US-FRI-1000030388

PATIENT
  Sex: Male
  Weight: 115 kg

DRUGS (15)
  1. LISINOPRIL [Concomitant]
     Dosage: 10 MG
     Route: 048
  2. SINGULAIR [Concomitant]
     Dosage: 10 MG
     Route: 048
  3. GEODON [Concomitant]
     Dosage: 40 MG
     Route: 048
  4. ZIPSOR [Concomitant]
     Dosage: 100 MG
     Route: 048
  5. VIIBRYD [Suspect]
     Indication: DEPRESSION
     Dosage: 10 MG
     Route: 048
     Dates: start: 20120425, end: 20120428
  6. NASONEX [Concomitant]
     Dosage: 200 MCG
     Route: 045
  7. MECLIZINE HCL [Concomitant]
     Dosage: 75 MG
     Route: 048
  8. LOVAZA [Concomitant]
     Dosage: 4 GRAM
     Route: 048
  9. ONGLYZA [Concomitant]
     Dosage: 5 MG
     Route: 048
  10. WELCHOL [Concomitant]
     Dosage: 3.75 GRAM
     Route: 048
  11. AMBIEN [Concomitant]
     Dosage: 12.5 MG
     Route: 048
  12. XOPENEX [Concomitant]
     Route: 055
  13. CIALIS [Concomitant]
     Dosage: 5 MG
     Route: 048
  14. SIMVASTATIN [Concomitant]
     Dosage: 20 MG
     Route: 048
  15. XYZAL [Concomitant]
     Dosage: 5 MG
     Route: 048

REACTIONS (1)
  - SUICIDAL IDEATION [None]
